FAERS Safety Report 19952626 (Version 1)
Quarter: 2021Q4

REPORT INFORMATION
  Report Type: Spontaneous
  Country: US (occurrence: US)
  Receive Date: 20211011
  Receipt Date: 20211011
  Transmission Date: 20220303
  Serious: Yes (Hospitalization)
  Sender: FDA-Public Use
  Company Number: None

PATIENT
  Age: 48 Year
  Sex: Female

DRUGS (21)
  1. NUCALA [Suspect]
     Active Substance: MEPOLIZUMAB
     Indication: Asthma
     Route: 058
     Dates: start: 20200325
  2. ALBUTEROL SULFATE [Concomitant]
     Active Substance: ALBUTEROL SULFATE
  3. ALOGLPTIN [Concomitant]
  4. BUDES/FORMOT [Concomitant]
  5. CEPHALEXIN [Concomitant]
     Active Substance: CEPHALEXIN
  6. DEXAMETHASONE [Concomitant]
     Active Substance: DEXAMETHASONE
  7. EPINEPHRINE [Concomitant]
     Active Substance: EPINEPHRINE
  8. ESOMEPRAZOLE MAGNESIUM [Concomitant]
     Active Substance: ESOMEPRAZOLE MAGNESIUM
  9. EUCRISA OIN [Concomitant]
  10. FLUCONAZOLE [Concomitant]
     Active Substance: FLUCONAZOLE
  11. INSULIN ASPA FLEXPEN [Concomitant]
  12. LANTUS SOLOS [Concomitant]
  13. METFORMIN [Concomitant]
     Active Substance: METFORMIN HYDROCHLORIDE
  14. METHYLPREDNISOLONE [Concomitant]
     Active Substance: METHYLPREDNISOLONE
  15. METRONIDAZOLE [Concomitant]
     Active Substance: METRONIDAZOLE
  16. NARCAN SPR [Concomitant]
  17. NITROFURANTOIN [Concomitant]
     Active Substance: NITROFURANTOIN
  18. OXYCODONE [Concomitant]
     Active Substance: OXYCODONE
  19. PREDNISONE [Concomitant]
     Active Substance: PREDNISONE
  20. SYNTHROID [Concomitant]
     Active Substance: LEVOTHYROXINE SODIUM
  21. XARELTO [Concomitant]
     Active Substance: RIVAROXABAN

REACTIONS (1)
  - Asthma [None]

NARRATIVE: CASE EVENT DATE: 20210901
